FAERS Safety Report 5567059-X (Version None)
Quarter: 2007Q4

REPORT INFORMATION
  Report Type: 
  Country: None (occurrence: None)
  Receive Date: 20071219
  Receipt Date: 20060120
  Transmission Date: 20080405
  Serious: Yes (Death, Other)
  Sender: FDA-Public Use
  Company Number: JP-ROCHE-433485

PATIENT
  Age: 75 Year
  Sex: Female

DRUGS (7)
  1. VESANOID [Suspect]
     Indication: ACUTE PROMYELOCYTIC LEUKAEMIA
     Route: 048
     Dates: start: 20000602, end: 20000717
  2. VESANOID [Suspect]
     Route: 048
     Dates: start: 20010301
  3. METHYLPREDNISOLONE [Concomitant]
     Dates: start: 20000601
  4. NOVANTRONE [Concomitant]
     Route: 042
     Dates: start: 20000601
  5. CYTARABINE [Concomitant]
     Route: 058
     Dates: start: 20010601
  6. ACLARUBICIN HYDROCHLORIDE [Concomitant]
     Route: 042
     Dates: start: 20010301
  7. GRAN [Concomitant]
     Route: 065
     Dates: start: 20010301

REACTIONS (2)
  - RETINOIC ACID SYNDROME [None]
  - VENTRICULAR FIBRILLATION [None]
